FAERS Safety Report 18678638 (Version 2)
Quarter: 2021Q3

REPORT INFORMATION
  Report Type: Spontaneous
  Country: US (occurrence: US)
  Receive Date: 20201230
  Receipt Date: 20210825
  Transmission Date: 20211014
  Serious: No
  Sender: FDA-Public Use
  Company Number: US-JNJFOC-20201249901

PATIENT
  Age: 5 Decade
  Sex: Female

DRUGS (1)
  1. TREMFYA [Suspect]
     Active Substance: GUSELKUMAB
     Indication: PSORIASIS
     Route: 058
     Dates: start: 202002

REACTIONS (2)
  - COVID-19 [Unknown]
  - Fatigue [Unknown]

NARRATIVE: CASE EVENT DATE: 2021
